FAERS Safety Report 7535850-6 (Version None)
Quarter: 2011Q2

REPORT INFORMATION
  Report Type: 
  Country: None (occurrence: None)
  Receive Date: 20110609
  Receipt Date: 20110128
  Transmission Date: 20111010
  Serious: Yes (Other)
  Sender: FDA-Public Use
  Company Number: US-BAYER-201025520NA

PATIENT
  Age: 24 Year
  Sex: Female
  Weight: 113.83 kg

DRUGS (5)
  1. DILAUDID [Concomitant]
     Indication: PAIN
     Dosage: 2 MG, Q4HR
     Route: 048
     Dates: start: 20080829
  2. PERCOCET [Concomitant]
     Indication: PAIN
  3. DROSPIRENONE AND ETHINYL ESTRADIOL [Suspect]
     Indication: ORAL CONTRACEPTION
     Dates: start: 20080826, end: 20081027
  4. ZOLOFT [Concomitant]
     Indication: PRODUCT USED FOR UNKNOWN INDICATION
     Dosage: DAILY DOSE 50 MG
  5. NAPROXEN [Concomitant]
     Indication: ABDOMINAL PAIN
     Dosage: UNK
     Dates: start: 20080717

REACTIONS (3)
  - DEEP VEIN THROMBOSIS [None]
  - FEAR [None]
  - PAIN IN EXTREMITY [None]
